FAERS Safety Report 9497133 (Version 1)
Quarter: 2013Q3

REPORT INFORMATION
  Report Type: Spontaneous
  Country: GB (occurrence: None)
  Receive Date: 20130830
  Receipt Date: 20130830
  Transmission Date: 20140515
  Serious: Yes (Other)
  Sender: FDA-Public Use
  Company Number: AUR-2013-07007

PATIENT
  Age: 79 Year
  Sex: Female
  Weight: 63.5 kg

DRUGS (3)
  1. MIRTAZAPINE (MIRTAZAPINE) [Suspect]
     Indication: SLEEP DISORDER
     Dates: start: 20130805
  2. DOSULEPIN (DOSULEPIN) [Concomitant]
  3. NITRAZEPAM (NITRAZEPAM) [Concomitant]

REACTIONS (2)
  - Suicidal ideation [None]
  - Muscle spasms [None]
